FAERS Safety Report 9768155 (Version 1)
Quarter: 2013Q4

REPORT INFORMATION
  Report Type: Spontaneous
  Country: JP (occurrence: JP)
  Receive Date: 20131217
  Receipt Date: 20131217
  Transmission Date: 20140711
  Serious: Yes (Other)
  Sender: FDA-Public Use
  Company Number: JP-PFIZER INC-2013360146

PATIENT
  Age: 9 Decade
  Sex: Female

DRUGS (2)
  1. LIPITOR [Suspect]
     Dosage: 10 MG, 1X/DAY
     Route: 048
     Dates: start: 2008
  2. DETRUSITOL [Suspect]
     Dosage: UNK
     Route: 048

REACTIONS (5)
  - Rhabdomyolysis [Unknown]
  - Pain in extremity [Unknown]
  - Urinary retention [Unknown]
  - Haematuria [Unknown]
  - Bacterial test positive [Unknown]
